FAERS Safety Report 11786550 (Version 1)
Quarter: 2015Q4

REPORT INFORMATION
  Report Type: Spontaneous
  Country: US (occurrence: US)
  Receive Date: 20151130
  Receipt Date: 20151130
  Transmission Date: 20160305
  Serious: Yes (Life-Threatening, Hospitalization, Other)
  Sender: FDA-Public Use
  Company Number: US-BIOCOMPATIBLES UK LTD-BTG00486

PATIENT

DRUGS (1)
  1. CROFAB [Suspect]
     Active Substance: CROTALIDAE POLYVALENT IMMUNE FAB (OVINE)
     Indication: SNAKE BITE
     Dosage: 34 VIALS TOTAL
     Dates: start: 201506, end: 201506

REACTIONS (8)
  - Pain [Recovering/Resolving]
  - Agitation [Unknown]
  - Investigation abnormal [Recovering/Resolving]
  - Blister [Unknown]
  - Swelling [Recovering/Resolving]
  - Erythema [Recovering/Resolving]
  - Contusion [Recovering/Resolving]
  - Coagulopathy [Recovering/Resolving]

NARRATIVE: CASE EVENT DATE: 201506
